FAERS Safety Report 14503834 (Version 2)
Quarter: 2018Q1

REPORT INFORMATION
  Report Type: Spontaneous
  Country: US (occurrence: US)
  Receive Date: 20180208
  Receipt Date: 20180218
  Transmission Date: 20180509
  Serious: No
  Sender: FDA-Public Use
  Company Number: US-JNJFOC-20171234609

PATIENT
  Sex: Female

DRUGS (1)
  1. IMBRUVICA [Suspect]
     Active Substance: IBRUTINIB
     Indication: CHRONIC LYMPHOCYTIC LEUKAEMIA
     Route: 065

REACTIONS (7)
  - Influenza like illness [Unknown]
  - White blood cell count abnormal [Unknown]
  - Malaise [Unknown]
  - Hepatic enzyme increased [Unknown]
  - Fatigue [Unknown]
  - Drug ineffective [Unknown]
  - Atrial fibrillation [Unknown]
